FAERS Safety Report 7413199-X (Version None)
Quarter: 2011Q2

REPORT INFORMATION
  Report Type: 
  Country: None (occurrence: None)
  Receive Date: 20110408
  Receipt Date: 20110408
  Transmission Date: 20111010
  Serious: Yes (Hospitalization)
  Sender: FDA-Public Use
  Company Number: None

PATIENT
  Age: 49 Year
  Sex: Female
  Weight: 78 kg

DRUGS (1)
  1. MOXIFLOXACIN [Suspect]
     Indication: UPPER RESPIRATORY TRACT INFECTION
     Dates: start: 20101208, end: 20101208

REACTIONS (3)
  - PHARYNGEAL OEDEMA [None]
  - RESPIRATORY DEPRESSION [None]
  - ANAPHYLACTIC REACTION [None]
